FAERS Safety Report 6550127-3 (Version None)
Quarter: 2010Q1

REPORT INFORMATION
  Report Type: 
  Country: None (occurrence: None)
  Receive Date: 20100125
  Receipt Date: 20100115
  Transmission Date: 20100710
  Serious: Yes (Other)
  Sender: FDA-Public Use
  Company Number: US-JNJFOC-20100106602

PATIENT
  Sex: Female
  Weight: 55.79 kg

DRUGS (1)
  1. REMICADE [Suspect]
     Indication: CROHN'S DISEASE
     Dosage: 3 VIALS, STARTED 11 YEARS AGO, ADMINISTEREED EVERY 8 WEEKS
     Route: 042

REACTIONS (3)
  - EYE INFLAMMATION [None]
  - HAEMORRHAGE [None]
  - MUSCLE SPASMS [None]
